FAERS Safety Report 4586456-2 (Version None)
Quarter: 2005Q1

REPORT INFORMATION
  Report Type: 
  Country: None (occurrence: None)
  Receive Date: 20050218
  Receipt Date: 20041217
  Transmission Date: 20050727
  Serious: Yes (Death)
  Sender: FDA-Public Use
  Company Number: 200414034JP

PATIENT
  Age: 78 Year
  Sex: Female
  Weight: 63 kg

DRUGS (14)
  1. TAXOTERE [Suspect]
     Indication: LARGE CELL LUNG CANCER RECURRENT
     Route: 041
     Dates: start: 20041021, end: 20041124
  2. TAXOTERE [Suspect]
     Indication: PROPHYLAXIS
     Route: 041
     Dates: start: 20041021, end: 20041124
  3. GEMZAR [Concomitant]
     Indication: LARGE CELL LUNG CANCER RECURRENT
     Route: 041
     Dates: start: 20041014, end: 20041116
  4. GEMZAR [Concomitant]
     Indication: PROPHYLAXIS
     Route: 041
     Dates: start: 20041014, end: 20041116
  5. CRAVIT [Concomitant]
     Indication: INFLAMMATION
     Route: 048
     Dates: start: 20041130, end: 20041211
  6. CRAVIT [Concomitant]
     Indication: PYREXIA
     Route: 048
     Dates: start: 20041130, end: 20041211
  7. ZANTAC [Concomitant]
     Indication: GASTRIC ULCER
     Route: 048
     Dates: start: 20041130, end: 20041211
  8. RENIVACE [Concomitant]
     Indication: HYPERTENSION
     Route: 048
     Dates: start: 20040826, end: 20041211
  9. MYSLEE [Concomitant]
     Indication: INSOMNIA
     Route: 048
     Dates: start: 20040826, end: 20041211
  10. LASIX [Concomitant]
     Indication: HYPERTENSION
     Route: 048
     Dates: start: 20040826, end: 20041211
  11. ATARAX [Concomitant]
     Indication: DEPRESSION
     Route: 048
     Dates: start: 20040826, end: 20041211
  12. MEDICON [Concomitant]
     Indication: COUGH
     Route: 048
     Dates: start: 20040826, end: 20041211
  13. DECADRON [Concomitant]
     Indication: HYPERSENSITIVITY
     Route: 042
     Dates: start: 20041021, end: 20041124
  14. SEROTONE [Concomitant]
     Indication: NAUSEA
     Route: 041
     Dates: start: 20041014, end: 20041124

REACTIONS (2)
  - BLOOD PRESSURE DECREASED [None]
  - INTERSTITIAL LUNG DISEASE [None]
